FAERS Safety Report 20048108 (Version 1)
Quarter: 2021Q4

REPORT INFORMATION
  Report Type: Report from Study
  Country: CR (occurrence: CR)
  Receive Date: 20211109
  Receipt Date: 20211109
  Transmission Date: 20220303
  Serious: Yes (Disabling)
  Sender: FDA-Public Use
  Company Number: CR-NOVARTISPH-PHHY2019CR121434

PATIENT
  Age: 62 Year
  Sex: Male

DRUGS (2)
  1. EXFORGE HCT [Suspect]
     Active Substance: AMLODIPINE BESYLATE\HYDROCHLOROTHIAZIDE\VALSARTAN
     Indication: Product used for unknown indication
     Dosage: (AMLODIPINE 5 MG, HYDROCHLOROTHIAZIDE 25 MG, VALSARTAN 160 MG)
     Route: 065
     Dates: start: 20190202
  2. EXFORGE HCT [Suspect]
     Active Substance: AMLODIPINE BESYLATE\HYDROCHLOROTHIAZIDE\VALSARTAN
     Dosage: 5/160/12.5 MG
     Route: 065
     Dates: start: 20211101

REACTIONS (2)
  - Accident [Unknown]
  - Hypertension [Unknown]
